FAERS Safety Report 8524161 (Version 3)
Quarter: 2013Q1

REPORT INFORMATION
  Report Type: Spontaneous
  Country: US (occurrence: US)
  Receive Date: 20120420
  Receipt Date: 20130304
  Transmission Date: 20140127
  Serious: Yes (Other)
  Sender: FDA-Public Use
  Company Number: US-ASTRAZENECA-2012SE24472

PATIENT
  Age: 50 Year
  Sex: Male

DRUGS (4)
  1. PRILOSEC [Suspect]
     Indication: DYSPEPSIA
     Route: 048
  2. PRILOSEC [Suspect]
     Indication: COUGH
     Route: 048
  3. NEXIUM [Suspect]
     Route: 048
  4. FLONASE [Concomitant]

REACTIONS (11)
  - Injury [Unknown]
  - Rib fracture [Unknown]
  - Weight increased [Unknown]
  - Gastrooesophageal reflux disease [Unknown]
  - Hyperchlorhydria [Not Recovered/Not Resolved]
  - Sensation of foreign body [Unknown]
  - Throat irritation [Unknown]
  - Cough [Recovering/Resolving]
  - Dyspepsia [Recovered/Resolved]
  - Off label use [Unknown]
  - Drug ineffective for unapproved indication [Unknown]
